APPROVED DRUG PRODUCT: RANOLAZINE
Active Ingredient: RANOLAZINE
Strength: 1GM
Dosage Form/Route: TABLET, EXTENDED RELEASE;ORAL
Application: A212781 | Product #002 | TE Code: AB
Applicant: ARTHUR GROUP LLC
Approved: Mar 23, 2020 | RLD: No | RS: No | Type: RX